FAERS Safety Report 9296373 (Version 1)
Quarter: 2013Q2

REPORT INFORMATION
  Report Type: Spontaneous
  Country: US (occurrence: US)
  Receive Date: 20130517
  Receipt Date: 20130517
  Transmission Date: 20140414
  Serious: Yes (Hospitalization, Other)
  Sender: FDA-Public Use
  Company Number: US-009507513-2010SP006324

PATIENT
  Sex: Female
  Weight: 113.4 kg

DRUGS (3)
  1. NUVARING [Suspect]
     Indication: CONTRACEPTION
     Route: 067
     Dates: start: 200605, end: 200609
  2. HEMP [Concomitant]
     Dosage: FIRST TIME USE
     Dates: start: 20060821
  3. PROVENTIL [Concomitant]

REACTIONS (6)
  - Pulmonary embolism [Unknown]
  - Hypertension [Unknown]
  - Maternal exposure before pregnancy [Recovered/Resolved]
  - Abdominal pain [Unknown]
  - Nausea [Unknown]
  - Vomiting [Unknown]
